FAERS Safety Report 4285257-2 (Version None)
Quarter: 2004Q1

REPORT INFORMATION
  Report Type: 
  Country: None (occurrence: None)
  Receive Date: 20040204
  Receipt Date: 20040129
  Transmission Date: 20041129
  Serious: Yes (Other)
  Sender: FDA-Public Use
  Company Number: JP-ROCHE-357776

PATIENT
  Age: 13 Year
  Sex: Female

DRUGS (4)
  1. TAMIFLU [Suspect]
     Route: 048
     Dates: start: 20040122, end: 20040125
  2. ASVERIN [Concomitant]
     Route: 048
  3. CARBOCISTEINE [Concomitant]
     Route: 048
  4. SALICYLAMIDE [Concomitant]
     Dosage: FORM REPORTED AS PACK
     Route: 048

REACTIONS (4)
  - MYDRIASIS [None]
  - PERIORBITAL HAEMATOMA [None]
  - STRABISMUS [None]
  - VISUAL DISTURBANCE [None]
